FAERS Safety Report 5693123-0 (Version None)
Quarter: 2008Q2

REPORT INFORMATION
  Report Type: 
  Country: None (occurrence: None)
  Receive Date: 20080402
  Receipt Date: 20080402
  Transmission Date: 20081010
  Serious: Yes (Other)
  Sender: FDA-Public Use
  Company Number: None

PATIENT
  Age: 26 Year
  Sex: Female
  Weight: 63.05 kg

DRUGS (1)
  1. SINGULAIR [Suspect]
     Indication: ALLERGY TO ANIMAL
     Dosage: 10 MG ONCE A DAY PO
     Route: 048
     Dates: start: 20070116, end: 20070327

REACTIONS (12)
  - ANOREXIA [None]
  - ANXIETY [None]
  - ASTHENIA [None]
  - CRYING [None]
  - DEPRESSION [None]
  - FEELING OF DESPAIR [None]
  - IMPAIRED WORK ABILITY [None]
  - INSOMNIA [None]
  - NIGHTMARE [None]
  - PERFORMANCE STATUS DECREASED [None]
  - SOCIAL AVOIDANT BEHAVIOUR [None]
  - SUICIDAL IDEATION [None]
